FAERS Safety Report 6859319-7 (Version None)
Quarter: 2010Q3

REPORT INFORMATION
  Report Type: 
  Country: None (occurrence: None)
  Receive Date: 20100719
  Receipt Date: 20080228
  Transmission Date: 20110219
  Serious: No
  Sender: FDA-Public Use
  Company Number: US-PFIZER INC-2008018700

PATIENT
  Sex: Female
  Weight: 59.1 kg

DRUGS (1)
  1. CHANTIX [Suspect]
     Indication: SMOKING CESSATION THERAPY
     Dates: start: 20080101, end: 20080201

REACTIONS (4)
  - ABNORMAL DREAMS [None]
  - FLATULENCE [None]
  - IRRITABILITY [None]
  - NAUSEA [None]
